FAERS Safety Report 4332954-6 (Version None)
Quarter: 2004Q1

REPORT INFORMATION
  Report Type: 
  Country: None (occurrence: None)
  Receive Date: 20040330
  Receipt Date: 20040322
  Transmission Date: 20041129
  Serious: Yes (Other)
  Sender: FDA-Public Use
  Company Number: 200403558

PATIENT
  Sex: Male

DRUGS (1)
  1. TYLENOL [Suspect]
     Indication: INFLUENZA LIKE ILLNESS
     Dosage: 1300 MG BID PO
     Route: 048
     Dates: start: 20040321

REACTIONS (1)
  - LOSS OF CONSCIOUSNESS [None]
